FAERS Safety Report 9841876 (Version 2)
Quarter: 2014Q1

REPORT INFORMATION
  Report Type: Report from Study
  Country: US (occurrence: US)
  Receive Date: 20140124
  Receipt Date: 20140124
  Transmission Date: 20141002
  Serious: Yes (Death, Hospitalization)
  Sender: FDA-Public Use
  Company Number: US-PFIZER INC-2014010358

PATIENT
  Age: 82 Year
  Sex: Male

DRUGS (10)
  1. CARBOPLATIN [Suspect]
     Indication: METASTATIC MALIGNANT MELANOMA
     Dosage: 6 AUC EVERY 3 WEEK
     Route: 042
     Dates: start: 20130703, end: 20131115
  2. PACLITAXEL [Suspect]
     Indication: METASTATIC MALIGNANT MELANOMA
     Dosage: 175 MILLIGRAM/SQ. METER 1/3 WEEK
     Route: 042
     Dates: start: 20130703, end: 20131115
  3. FRAGMIN [Suspect]
     Indication: VENOUS THROMBOSIS
     Dosage: UNK
     Dates: start: 20131021
  4. GLUCOSAMINE [Concomitant]
     Dosage: UNK
     Dates: start: 20130128
  5. MULTIVITAMIN [Concomitant]
     Dosage: UNK
     Dates: start: 20130128
  6. IBUPROFEN [Concomitant]
     Dosage: UNK
     Dates: start: 20130415
  7. HYDROCORTISONE [Concomitant]
     Dosage: UNK
     Dates: start: 20130618
  8. LEVOTHYROXINE [Concomitant]
     Dosage: UNK
     Dates: start: 20130618
  9. PROCHLORPERAZINE [Concomitant]
     Dosage: UNK
     Dates: start: 20130703
  10. DALTEPARIN [Concomitant]
     Dosage: UNK
     Dates: start: 20131021

REACTIONS (3)
  - Disease progression [Fatal]
  - Metastatic malignant melanoma [Fatal]
  - Cerebrovascular accident [Fatal]
